FAERS Safety Report 24608422 (Version 1)
Quarter: 2024Q4

REPORT INFORMATION
  Report Type: Spontaneous
  Country: US (occurrence: US)
  Receive Date: 20241112
  Receipt Date: 20241112
  Transmission Date: 20250114
  Serious: No
  Sender: TARO
  Company Number: US-TARO PHARMACEUTICALS USA INC.-2024TAR01769

PATIENT

DRUGS (1)
  1. ADAPALENE [Suspect]
     Active Substance: ADAPALENE
     Indication: Product used for unknown indication
     Dosage: 2 OR MORE TIMES A WEEK, LIKE A DIME SIZE
     Route: 061
     Dates: start: 2024, end: 202406

REACTIONS (7)
  - Skin tightness [Recovering/Resolving]
  - Condition aggravated [Unknown]
  - Erythema [Recovering/Resolving]
  - Skin irritation [Recovering/Resolving]
  - Skin burning sensation [Recovering/Resolving]
  - Dry skin [Recovering/Resolving]
  - Product use in unapproved indication [Unknown]

NARRATIVE: CASE EVENT DATE: 20240101
